FAERS Safety Report 11245423 (Version 1)
Quarter: 2015Q3

REPORT INFORMATION
  Report Type: Spontaneous
  Country: US (occurrence: US)
  Receive Date: 20150707
  Receipt Date: 20150707
  Transmission Date: 20151125
  Serious: No
  Sender: FDA-Public Use
  Company Number: US-BAXALTA-2015BLT000061

PATIENT

DRUGS (1)
  1. FLEXBUMIN [Suspect]
     Active Substance: ALBUMIN (HUMAN)
     Indication: OFF LABEL USE

REACTIONS (1)
  - Off label use [Unknown]
